FAERS Safety Report 5487055-0 (Version None)
Quarter: 2007Q3

REPORT INFORMATION
  Report Type: 
  Country: None (occurrence: None)
  Receive Date: 20070925
  Receipt Date: 20070719
  Transmission Date: 20080115
  Serious: No
  Sender: FDA-Public Use
  Company Number: 2007US001672

PATIENT
  Age: 74 Year
  Sex: Female

DRUGS (6)
  1. VESICARE [Suspect]
     Indication: HYPERTONIC BLADDER
     Dosage: 5 MG, UID/QD, ORAL, 10 MG, UID/QD, ORAL
     Route: 048
     Dates: start: 20070101, end: 20070401
  2. VESICARE [Suspect]
     Indication: HYPERTONIC BLADDER
     Dosage: 5 MG, UID/QD, ORAL, 10 MG, UID/QD, ORAL
     Route: 048
     Dates: start: 20070401
  3. DDAVP [Suspect]
     Indication: DRUG USE FOR UNKNOWN INDICATION
     Dosage: ORAL
     Route: 048
     Dates: start: 20070101, end: 20070401
  4. SOTALOL HCL [Concomitant]
  5. COZAAR (LORSATAN POTASSIUM) [Concomitant]
  6. STOOL SOFTENER (DOCUSATE SODIUM) [Concomitant]

REACTIONS (1)
  - JOINT SWELLING [None]
